FAERS Safety Report 7065761-4 (Version None)
Quarter: 2010Q4

REPORT INFORMATION
  Report Type: 
  Country: None (occurrence: None)
  Receive Date: 20101027
  Receipt Date: 19880115
  Transmission Date: 20110411
  Serious: Yes (Death, Hospitalization)
  Sender: FDA-Public Use
  Company Number: DE-ROCHE-880314470001

PATIENT
  Sex: Female

DRUGS (13)
  1. VALIUM [Suspect]
     Route: 065
     Dates: start: 19870119, end: 19870210
  2. BACTRIM [Suspect]
     Indication: BRONCHITIS
     Route: 042
     Dates: start: 19870203, end: 19870210
  3. KONAKION [Suspect]
     Route: 065
     Dates: start: 19870119, end: 19870210
  4. ROHYPNOL [Suspect]
     Route: 065
     Dates: start: 19870119, end: 19870210
  5. HEPARIN SODIUM [Suspect]
     Route: 065
  6. PIPERACILLIN [Concomitant]
     Indication: BRONCHITIS
     Route: 042
     Dates: start: 19870129, end: 19870210
  7. MICONAZOLE [Concomitant]
     Indication: BRONCHITIS
     Route: 042
     Dates: start: 19870129, end: 19870210
  8. CEFOTAXIME SODIUM [Concomitant]
     Indication: BRONCHITIS
     Route: 042
     Dates: start: 19870120, end: 19870128
  9. TOBRAMYCIN [Concomitant]
     Route: 042
  10. PENICILLIN [Concomitant]
     Indication: BRONCHITIS
     Route: 042
     Dates: start: 19870123, end: 19870128
  11. THEOPHYLLINE [Concomitant]
     Route: 065
     Dates: start: 19870119, end: 19870210
  12. PREDNISOLON [Concomitant]
     Route: 065
     Dates: start: 19870119, end: 19870210
  13. NIFEDIPINE [Concomitant]
     Route: 065
     Dates: start: 19870119, end: 19870210

REACTIONS (2)
  - CARDIAC FAILURE [None]
  - PSEUDOMEMBRANOUS COLITIS [None]
